FAERS Safety Report 9254541 (Version 1)
Quarter: 2013Q2

REPORT INFORMATION
  Report Type: Spontaneous
  Country: US (occurrence: US)
  Receive Date: 20130425
  Receipt Date: 20130425
  Transmission Date: 20140414
  Serious: No
  Sender: FDA-Public Use
  Company Number: US-GLAXOSMITHKLINE-A1015785A

PATIENT
  Sex: Male

DRUGS (1)
  1. HORIZANT [Suspect]
     Indication: PRODUCT USED FOR UNKNOWN INDICATION
     Dosage: 600MG UNKNOWN
     Route: 048

REACTIONS (1)
  - Dizziness [Recovered/Resolved]
